FAERS Safety Report 8023052-9 (Version None)
Quarter: 2012Q1

REPORT INFORMATION
  Report Type: 
  Country: None (occurrence: None)
  Receive Date: 20120104
  Receipt Date: 20111230
  Transmission Date: 20120608
  Serious: Yes (Other)
  Sender: FDA-Public Use
  Company Number: US-PFIZER INC-2011317426

PATIENT
  Sex: Female
  Weight: 58.957 kg

DRUGS (2)
  1. OXYCONTIN [Concomitant]
     Indication: PAIN
     Dosage: 75 MG, UNK
  2. EMBEDA [Suspect]
     Indication: PAIN
     Dosage: 80/3.2 MG, 2X/DAY
     Route: 048
     Dates: start: 20100101, end: 20110801

REACTIONS (1)
  - LYMPHOMA OPERATION [None]
